FAERS Safety Report 7220479-X (Version None)
Quarter: 2011Q1

REPORT INFORMATION
  Report Type: 
  Country: None (occurrence: None)
  Receive Date: 20110111
  Receipt Date: 20110104
  Transmission Date: 20110831
  Serious: No
  Sender: FDA-Public Use
  Company Number: US-US-EMD SERONO, INC.-7002210

PATIENT
  Sex: Female

DRUGS (1)
  1. REBIF [Suspect]
     Indication: MULTIPLE SCLEROSIS
     Route: 058
     Dates: start: 20091009

REACTIONS (5)
  - DECREASED APPETITE [None]
  - REGURGITATION [None]
  - IMPAIRED GASTRIC EMPTYING [None]
  - ABDOMINAL DISCOMFORT [None]
  - MUSCULOSKELETAL CHEST PAIN [None]
